FAERS Safety Report 8957999 (Version 2)
Quarter: 2013Q2

REPORT INFORMATION
  Report Type: Spontaneous
  Country: US (occurrence: US)
  Receive Date: 20121211
  Receipt Date: 20130411
  Transmission Date: 20140414
  Serious: No
  Sender: FDA-Public Use
  Company Number: US-BIOGENIDEC-2012BI058175

PATIENT
  Sex: Female

DRUGS (1)
  1. TYSABRI [Suspect]
     Indication: MULTIPLE SCLEROSIS
     Route: 042
     Dates: start: 20110526

REACTIONS (25)
  - Influenza like illness [Unknown]
  - Muscular weakness [Not Recovered/Not Resolved]
  - Feeling hot [Recovered/Resolved]
  - Hyperhidrosis [Unknown]
  - Atrophy [Unknown]
  - Paraesthesia [Unknown]
  - Central nervous system lesion [Unknown]
  - Muscle atrophy [Not Recovered/Not Resolved]
  - Peroneal nerve palsy [Not Recovered/Not Resolved]
  - Deafness transitory [Unknown]
  - Drug intolerance [Unknown]
  - Fear [Unknown]
  - Deafness [Unknown]
  - Scar [Unknown]
  - Stubbornness [Unknown]
  - Diarrhoea [Recovered/Resolved]
  - Muscle spasticity [Not Recovered/Not Resolved]
  - Musculoskeletal disorder [Not Recovered/Not Resolved]
  - Hypoaesthesia [Not Recovered/Not Resolved]
  - Foot deformity [Not Recovered/Not Resolved]
  - Headache [Unknown]
  - Upper respiratory tract infection [Unknown]
  - Nasopharyngitis [Unknown]
  - Malaise [Unknown]
  - Fatigue [Unknown]
